FAERS Safety Report 11433904 (Version 2)
Quarter: 2015Q3

REPORT INFORMATION
  Report Type: Spontaneous
  Country: UA (occurrence: UA)
  Receive Date: 20150831
  Receipt Date: 20150904
  Transmission Date: 20151125
  Serious: Yes (Death, Hospitalization, Other)
  Sender: FDA-Public Use
  Company Number: UA-ASTRAZENECA-2015SE82238

PATIENT
  Age: 60 Year
  Sex: Male

DRUGS (4)
  1. ASPIRIN. [Concomitant]
     Active Substance: ASPIRIN
  2. STATINS [Concomitant]
     Active Substance: UNSPECIFIED INGREDIENT
  3. BRILINTA [Suspect]
     Active Substance: TICAGRELOR
     Indication: ACUTE CORONARY SYNDROME
     Route: 048
  4. FLEXAN [Concomitant]

REACTIONS (5)
  - Acute coronary syndrome [Unknown]
  - Circulatory collapse [Fatal]
  - Coronary artery stenosis [Unknown]
  - Angina pectoris [Unknown]
  - Thrombosis in device [Fatal]

NARRATIVE: CASE EVENT DATE: 20150731
